FAERS Safety Report 6466316-2 (Version None)
Quarter: 2009Q4

REPORT INFORMATION
  Report Type: 
  Country: None (occurrence: None)
  Receive Date: 20091202
  Receipt Date: 20091123
  Transmission Date: 20100525
  Serious: Yes (Hospitalization)
  Sender: FDA-Public Use
  Company Number: ZA-JNJFOC-20091104690

PATIENT
  Sex: Female
  Weight: 67 kg

DRUGS (2)
  1. REVELLEX [Suspect]
     Dosage: ON AN UNSPECIFIED DATE, DECREASED INFUSION INTERVAL TO EVERY 7 WEEKS
     Route: 042
  2. REVELLEX [Suspect]
     Indication: CROHN'S DISEASE
     Route: 042

REACTIONS (6)
  - DEHYDRATION [None]
  - DRUG INEFFECTIVE [None]
  - DRUG SPECIFIC ANTIBODY PRESENT [None]
  - RECTAL ABSCESS [None]
  - SEPTIC SHOCK [None]
  - VAGINAL FISTULA [None]
